FAERS Safety Report 9808771 (Version 1)
Quarter: 2014Q1

REPORT INFORMATION
  Report Type: Spontaneous
  Country: US (occurrence: US)
  Receive Date: 20140110
  Receipt Date: 20140110
  Transmission Date: 20141002
  Serious: No
  Sender: FDA-Public Use
  Company Number: US-GE HEALTHCARE MEDICAL DIAGNOSTICS-VISP-PR-1401S-0004

PATIENT
  Sex: Female

DRUGS (2)
  1. VISIPAQUE [Suspect]
     Indication: DYSPNOEA
     Route: 042
     Dates: start: 20140104, end: 20140104
  2. VISIPAQUE [Suspect]
     Indication: DIAGNOSTIC PROCEDURE

REACTIONS (1)
  - Extravasation [Unknown]
